FAERS Safety Report 8502706-1 (Version None)
Quarter: 2012Q3

REPORT INFORMATION
  Report Type: 
  Country: None (occurrence: None)
  Receive Date: 20120706
  Receipt Date: 20120706
  Transmission Date: 20120928
  Serious: Yes (Life-Threatening)
  Sender: FDA-Public Use
  Company Number: None

PATIENT

DRUGS (4)
  1. MORPHINE SULFATE [Suspect]
     Indication: INTERVERTEBRAL DISC DEGENERATION
     Dosage: 15 MG TABLET EVERY 4 HRS ORAL CONTINUOUS EVERY 4 HRS , DAILY SINCE FEB 2012
     Route: 048
  2. MORPHINE SULFATE [Suspect]
     Indication: COMPRESSION FRACTURE
     Dosage: 15 MG TABLET EVERY 4 HRS ORAL CONTINUOUS EVERY 4 HRS , DAILY SINCE FEB 2012
     Route: 048
  3. MORPHINE SULFATE [Suspect]
     Indication: HAEMATOMA
     Dosage: 15 MG TABLET EVERY 4 HRS ORAL CONTINUOUS EVERY 4 HRS , DAILY SINCE FEB 2012
     Route: 048
  4. MORPHINE SULFATE [Suspect]
     Indication: CERVICAL SPINAL STENOSIS
     Dosage: 15 MG TABLET EVERY 4 HRS ORAL CONTINUOUS EVERY 4 HRS , DAILY SINCE FEB 2012
     Route: 048

REACTIONS (7)
  - LOSS OF CONSCIOUSNESS [None]
  - SPINAL PAIN [None]
  - EATING DISORDER [None]
  - FEELING ABNORMAL [None]
  - ALTERED STATE OF CONSCIOUSNESS [None]
  - HYPOAESTHESIA [None]
  - SPINAL DISORDER [None]
